FAERS Safety Report 9008583 (Version 4)
Quarter: 2013Q1

REPORT INFORMATION
  Report Type: Spontaneous
  Country: US (occurrence: US)
  Receive Date: 20130111
  Receipt Date: 20130222
  Transmission Date: 20140127
  Serious: No
  Sender: FDA-Public Use
  Company Number: US-PFIZER INC-2013004477

PATIENT
  Age: 58 Year
  Sex: Male
  Weight: 97.51 kg

DRUGS (4)
  1. DEPO-TESTOSTERONE [Suspect]
     Indication: BLOOD TESTOSTERONE DECREASED
     Dosage: 0.5 CC, WEEKLY
     Dates: start: 201210, end: 2012
  2. DEPO-TESTOSTERONE [Suspect]
     Dosage: TITRATED TO 1CC, WEEKLY
     Dates: start: 2012, end: 2012
  3. DEPO-TESTOSTERONE [Suspect]
     Dosage: TITRATED TO 1.5CC, WEEKLY
     Dates: start: 2012, end: 2012
  4. DEPO-TESTOSTERONE [Suspect]
     Dosage: TITRATED TO 2CC, WEEKLY
     Dates: start: 2012

REACTIONS (2)
  - Insomnia [Unknown]
  - Drug ineffective [Unknown]
